FAERS Safety Report 5139503-3 (Version None)
Quarter: 2006Q4

REPORT INFORMATION
  Report Type: 
  Country: None (occurrence: None)
  Receive Date: 20061030
  Receipt Date: 20061026
  Transmission Date: 20070319
  Serious: Yes (Other)
  Sender: FDA-Public Use
  Company Number: US-BOEHRINGER INGELHEIM PHARMACEUTICALS, INC.-2006-BP-12590BP

PATIENT
  Sex: Female

DRUGS (1)
  1. CLONIDINE HCL [Suspect]

REACTIONS (1)
  - RENAL TRANSPLANT [None]
